FAERS Safety Report 17001539 (Version 3)
Quarter: 2020Q1

REPORT INFORMATION
  Report Type: Spontaneous
  Country: JP (occurrence: JP)
  Receive Date: 20191106
  Receipt Date: 20200304
  Transmission Date: 20200409
  Serious: Yes (Death, Hospitalization, Other)
  Sender: FDA-Public Use
  Company Number: JP-009507513-1908JPN000161J

PATIENT
  Age: 71 Year
  Sex: Male
  Weight: 61 kg

DRUGS (21)
  1. TAZOBACTAM [Suspect]
     Active Substance: TAZOBACTAM
     Dosage: UNK,THREE TIMES A DAY
     Route: 041
     Dates: start: 20190816, end: 20190818
  2. CARBAZOCHROME SODIUM SULFONATE [Concomitant]
     Active Substance: CARBAZOCHROME SODIUM SULFONATE
     Dosage: 30 MILLIGRAM, TID
     Route: 048
     Dates: start: 20190604, end: 20190824
  3. CODEINE PHOSPHATE HYDRATE [Concomitant]
     Active Substance: CODEINE PHOSPHATE
     Dosage: UNK,AS-NEEDED BASIS
     Route: 048
     Dates: start: 20190612, end: 20190824
  4. SPIRIVA [Concomitant]
     Active Substance: TIOTROPIUM BROMIDE MONOHYDRATE
     Dosage: 5 MILLIGRAM, QD
     Dates: start: 20190627, end: 20190824
  5. FLORID [Concomitant]
     Active Substance: MICONAZOLE
     Dosage: 20 GRAM, QID
     Route: 048
     Dates: start: 20190703, end: 20190824
  6. PACLITAXEL. [Suspect]
     Active Substance: PACLITAXEL
     Dosage: 137 MILLIGRAM
     Route: 041
     Dates: start: 20190726, end: 20190726
  7. ACETAMINOPHEN. [Suspect]
     Active Substance: ACETAMINOPHEN
     Dosage: 1500 MILLIGRAM, TID
     Route: 048
     Dates: start: 20190610, end: 20190824
  8. OXYCONTIN [Concomitant]
     Active Substance: OXYCODONE HYDROCHLORIDE
     Dosage: 10 MILLIGRAM, BID
     Route: 048
     Dates: start: 20190613, end: 20190824
  9. MAGMITT [Concomitant]
     Active Substance: MAGNESIUM OXIDE
     Dosage: 990 MILLIGRAM, TID
     Route: 048
     Dates: start: 20190613, end: 20190824
  10. CARBOPLATIN. [Suspect]
     Active Substance: CARBOPLATIN
     Indication: NON-SMALL CELL LUNG CANCER
     Dosage: 587 MILLIGRAM
     Route: 041
     Dates: start: 20190628, end: 20190628
  11. OXINORM [Concomitant]
     Dosage: UNK,AS-NEEDED BASIS
     Route: 048
     Dates: start: 20190613, end: 20190824
  12. KEYTRUDA [Suspect]
     Active Substance: PEMBROLIZUMAB
     Indication: NON-SMALL CELL LUNG CANCER
     Dosage: 200 MILLIGRAM, Q3W
     Route: 041
     Dates: start: 20190628, end: 20190726
  13. TRANEXAMIC ACID. [Concomitant]
     Active Substance: TRANEXAMIC ACID
     Dosage: 750 MILLIGRAM, TID
     Route: 048
     Dates: start: 20190604, end: 20190824
  14. LOXOPROFEN SODIUM HYDRATE [Concomitant]
     Active Substance: LOXOPROFEN SODIUM DIHYDRATE
     Dosage: 180 MILLIGRAM, TID
     Route: 048
     Dates: start: 20190610, end: 20190801
  15. REBAMIPIDE [Concomitant]
     Active Substance: REBAMIPIDE
     Dosage: 300 MILLIGRAM, TID
     Route: 048
     Dates: start: 20190610, end: 20190824
  16. PACLITAXEL. [Suspect]
     Active Substance: PACLITAXEL
     Indication: NON-SMALL CELL LUNG CANCER
     Dosage: 180 MILLIGRAM, QW
     Route: 041
     Dates: start: 20190628, end: 20190628
  17. FUROSEMIDE. [Concomitant]
     Active Substance: FUROSEMIDE
     Dosage: 20 MILLIGRAM, QD
     Route: 048
     Dates: start: 20190612, end: 20190802
  18. EMEND [Concomitant]
     Active Substance: APREPITANT
     Dosage: UNK
     Route: 048
     Dates: start: 20190726, end: 20190728
  19. CARBOPLATIN. [Suspect]
     Active Substance: CARBOPLATIN
     Dosage: 470 MILLIGRAM
     Route: 041
     Dates: start: 20190726, end: 20190726
  20. CARBOCISTEINE [Concomitant]
     Active Substance: CARBOCYSTEINE
     Dosage: 1500 MILLIGRAM, TID
     Route: 048
     Dates: start: 20190604, end: 20190824
  21. EMEND [Concomitant]
     Active Substance: APREPITANT
     Dosage: 125 MG ON THE FIRST DAY, 80 MG ON THE SECOND AND THIRD TIMES, ONCE A DAY
     Route: 048
     Dates: start: 20190628, end: 20190630

REACTIONS (9)
  - Nausea [Recovered/Resolved]
  - Drug eruption [Recovered/Resolved]
  - Interstitial lung disease [Fatal]
  - Heat illness [Unknown]
  - Aspiration [Unknown]
  - Hepatic function abnormal [Recovered/Resolved]
  - Malignant neoplasm progression [Fatal]
  - Dehydration [Unknown]
  - Hyponatraemia [Unknown]

NARRATIVE: CASE EVENT DATE: 20190704
